FAERS Safety Report 9984528 (Version 1)
Quarter: 2014Q1

REPORT INFORMATION
  Report Type: Spontaneous
  Country: US (occurrence: US)
  Receive Date: 20140307
  Receipt Date: 20140307
  Transmission Date: 20141002
  Serious: Yes (Other)
  Sender: FDA-Public Use
  Company Number: US-BAYER-2014-030583

PATIENT
  Sex: Female

DRUGS (4)
  1. CIPRO [Suspect]
  2. AMLODIPINE [Suspect]
  3. ASPIRIN [Concomitant]
  4. TOPROL [Concomitant]

REACTIONS (2)
  - Clostridium difficile infection [None]
  - Abdominal pain upper [None]
